FAERS Safety Report 11797949 (Version 1)
Quarter: 2015Q4

REPORT INFORMATION
  Report Type: Spontaneous
  Country: US (occurrence: US)
  Receive Date: 20151203
  Receipt Date: 20151203
  Transmission Date: 20160305
  Serious: No
  Sender: FDA-Public Use
  Company Number: US-CELGENEUS-USA-2015105697

PATIENT
  Age: 35 Year
  Sex: Female

DRUGS (4)
  1. OTEZLA [Suspect]
     Active Substance: APREMILAST
     Indication: PSORIASIS
  2. ARAVA [Suspect]
     Active Substance: LEFLUNOMIDE
     Indication: PSORIASIS
     Route: 065
  3. OTEZLA [Suspect]
     Active Substance: APREMILAST
     Indication: PSORIATIC ARTHROPATHY
     Dosage: 60 MILLIGRAM
     Route: 048
     Dates: start: 20140601
  4. ARAVA [Suspect]
     Active Substance: LEFLUNOMIDE
     Indication: PSORIATIC ARTHROPATHY
     Route: 065

REACTIONS (2)
  - Weight decreased [Unknown]
  - Alopecia [Unknown]

NARRATIVE: CASE EVENT DATE: 20140601
